FAERS Safety Report 11180790 (Version 5)
Quarter: 2018Q3

REPORT INFORMATION
  Report Type: Report from Study
  Country: JP (occurrence: JP)
  Receive Date: 20150611
  Receipt Date: 20180703
  Transmission Date: 20181010
  Serious: Yes (Hospitalization)
  Sender: FDA-Public Use
  Company Number: JP-INCYTE CORPORATION-2015IN002619

PATIENT

DRUGS (4)
  1. DAIPHEN [Concomitant]
     Active Substance: SULFAMETHOXAZOLE\TRIMETHOPRIM
     Indication: OPPORTUNISTIC INFECTION PROPHYLAXIS
     Dosage: 1 DF, QD
     Route: 048
     Dates: start: 20141120
  2. JAKAVI [Suspect]
     Active Substance: RUXOLITINIB
     Dosage: 10 MG, BID
     Route: 048
     Dates: start: 20160215, end: 20160625
  3. ACICLOVIR [Concomitant]
     Active Substance: ACYCLOVIR
     Indication: OPPORTUNISTIC INFECTION PROPHYLAXIS
     Dosage: 200 MG, QD
     Route: 048
     Dates: start: 20141120
  4. JAKAVI [Suspect]
     Active Substance: RUXOLITINIB
     Indication: MYELOFIBROSIS
     Dosage: 10 MG, BID
     Route: 048
     Dates: start: 20141110, end: 20160121

REACTIONS (13)
  - Dyspnoea exertional [Unknown]
  - Supraventricular extrasystoles [Unknown]
  - Cardiomegaly [Unknown]
  - Cardiac failure congestive [Recovering/Resolving]
  - Malaise [Unknown]
  - Ventricular extrasystoles [Unknown]
  - Pulmonary congestion [Unknown]
  - Brain natriuretic peptide increased [Unknown]
  - Pneumonia [Recovered/Resolved]
  - Productive cough [Recovering/Resolving]
  - Electrocardiogram T wave amplitude decreased [Unknown]
  - Cough [Recovering/Resolving]
  - Cerebral infarction [Recovering/Resolving]

NARRATIVE: CASE EVENT DATE: 20150429
